FAERS Safety Report 4590372-X (Version None)
Quarter: 2005Q1

REPORT INFORMATION
  Report Type: 
  Country: None (occurrence: None)
  Receive Date: 20050217
  Receipt Date: 20050211
  Transmission Date: 20050727
  Serious: Yes (Death)
  Sender: FDA-Public Use
  Company Number: 1353

PATIENT
  Sex: Female

DRUGS (1)
  1. AMNESTEEM [Suspect]
     Indication: ACNE
     Dosage: BID, PO
     Route: 048
     Dates: start: 20040808, end: 20041117

REACTIONS (10)
  - BRAIN DEATH [None]
  - CEREBRAL HAEMORRHAGE [None]
  - DRY EYE [None]
  - DYSPNOEA [None]
  - EYE IRRITATION [None]
  - FATIGUE [None]
  - RESPIRATORY ARREST [None]
  - RESPIRATORY FAILURE [None]
  - SLEEP APNOEA SYNDROME [None]
  - UPPER RESPIRATORY TRACT INFECTION [None]
